FAERS Safety Report 6480605-7 (Version None)
Quarter: 2009Q4

REPORT INFORMATION
  Report Type: 
  Country: None (occurrence: None)
  Receive Date: 20091123
  Receipt Date: 20090729
  Transmission Date: 20100525
  Serious: Yes (Hospitalization)
  Sender: FDA-Public Use
  Company Number: 8049916

PATIENT
  Age: 68 Year
  Sex: Male

DRUGS (10)
  1. CIMZIA [Suspect]
     Indication: CROHN'S DISEASE
     Dosage: 400 MG SC
     Route: 058
     Dates: start: 20081027
  2. AMIODARONE [Concomitant]
  3. TOPROL-XL [Concomitant]
  4. COREG [Concomitant]
  5. LISINOPRIL [Concomitant]
  6. FUROSEMIDE [Concomitant]
  7. ACTOS [Concomitant]
  8. GLYBURIDE [Concomitant]
  9. SLOW RELEASE FE [Concomitant]
  10. NEXIUM [Concomitant]

REACTIONS (1)
  - DEEP VEIN THROMBOSIS [None]
